FAERS Safety Report 22173826 (Version 7)
Quarter: 2024Q2

REPORT INFORMATION
  Report Type: Spontaneous
  Country: CA (occurrence: CA)
  Receive Date: 20230404
  Receipt Date: 20240530
  Transmission Date: 20240715
  Serious: Yes (Life-Threatening, Hospitalization, Other)
  Sender: FDA-Public Use
  Company Number: CA-ANIPHARMA-2019-CA-000473

PATIENT
  Age: 61 Year
  Sex: Female

DRUGS (60)
  1. ATACAND [Suspect]
     Active Substance: CANDESARTAN CILEXETIL
     Indication: Hypertension
     Route: 048
  2. MORPHINE SULFATE [Suspect]
     Active Substance: MORPHINE SULFATE
     Route: 065
  3. ZOFRAN [Suspect]
     Active Substance: ONDANSETRON HYDROCHLORIDE
     Route: 065
  4. METHYLPREDNISOLONE SODIUM SUCCINATE [Suspect]
     Active Substance: METHYLPREDNISOLONE SODIUM SUCCINATE
     Dosage: 100 MG DAILY
     Route: 042
  5. DIPHENHYDRAMINE HYDROCHLORIDE [Suspect]
     Active Substance: DIPHENHYDRAMINE HYDROCHLORIDE
     Dosage: 50 MG QD
     Route: 048
  6. GLICLAZIDE [Suspect]
     Active Substance: GLICLAZIDE
     Route: 048
  7. PREDNISONE [Suspect]
     Active Substance: PREDNISONE
     Route: 065
  8. PROCHLORPERAZINE [Suspect]
     Active Substance: PROCHLORPERAZINE
     Dosage: UNK / DOSE TEXT: PROCHLORPERAZINE
     Route: 065
  9. SYNTHROID [Suspect]
     Active Substance: LEVOTHYROXINE SODIUM
     Route: 065
  10. GRAVOL [Suspect]
     Active Substance: DIMENHYDRINATE
     Dosage: 50 MG DAILY / 100 MG DAILY / 50 MG UNK
     Route: 065
  11. RITUXIMAB [Suspect]
     Active Substance: RITUXIMAB
     Dosage: 1000 MG UNK
     Route: 042
  12. LISINOPRIL [Suspect]
     Active Substance: LISINOPRIL
     Route: 048
  13. EZETIMIBE [Concomitant]
     Active Substance: EZETIMIBE
     Route: 065
  14. HUMALOG [Concomitant]
     Active Substance: INSULIN LISPRO
     Route: 065
  15. JANUVIA [Concomitant]
     Active Substance: SITAGLIPTIN PHOSPHATE
     Route: 065
  16. LANTUS [Concomitant]
     Active Substance: INSULIN GLARGINE
     Route: 065
  17. LEVEMIR [Concomitant]
     Active Substance: INSULIN DETEMIR
     Route: 065
  18. LYRICA [Concomitant]
     Active Substance: PREGABALIN
     Route: 065
  19. PANTOPRAZOLE SODIUM [Suspect]
     Active Substance: PANTOPRAZOLE SODIUM
     Route: 065
  20. ROSUVASTATIN CALCIUM [Concomitant]
     Active Substance: ROSUVASTATIN CALCIUM
     Route: 065
  21. NEXIUM [Suspect]
     Active Substance: ESOMEPRAZOLE MAGNESIUM
  22. LEVOTHYROXINE [Concomitant]
     Active Substance: LEVOTHYROXINE\LEVOTHYROXINE SODIUM
     Route: 065
  23. ALTACE [Suspect]
     Active Substance: RAMIPRIL
     Route: 048
  24. TYLENOL [Concomitant]
     Active Substance: ACETAMINOPHEN
     Dosage: 650 MG QD
     Route: 048
  25. TUMS [Suspect]
     Active Substance: CALCIUM CARBONATE
     Route: 065
  26. METFORMIN HYDROCHLORIDE [Suspect]
     Active Substance: METFORMIN HYDROCHLORIDE
     Route: 048
  27. LIPITOR [Suspect]
     Active Substance: ATORVASTATIN CALCIUM
     Dosage: 20 MG DAILY
     Route: 065
  28. ERGOCALCIFEROL [Suspect]
     Active Substance: ERGOCALCIFEROL
  29. COSENTYX [Suspect]
     Active Substance: SECUKINUMAB
     Dosage: 30 MG WEEK / 300 MG MONTH / UNK / 30 MG WEEK / 30 MG WEEK / UNK / UNK
     Route: 058
  30. ALISKIREN HEMIFUMARATE [Suspect]
     Active Substance: ALISKIREN HEMIFUMARATE
     Dosage: 300 MG DAILY / 150 MG DAILY / 300 MG DAILY / 150 MG DAILY / 300 MG DAILY / UNK
     Route: 065
  31. BISOPROLOL [Suspect]
     Active Substance: BISOPROLOL\BISOPROLOL FUMARATE
     Route: 065
  32. IRBESARTAN [Suspect]
     Active Substance: IRBESARTAN
     Dosage: 300 MG DAILY / 300 MG DAILY
     Route: 065
  33. DOMPERIDONE [Concomitant]
     Active Substance: DOMPERIDONE
     Route: 065
  34. METHOTREXATE [Suspect]
     Active Substance: METHOTREXATE
     Route: 050
  35. ACITRETIN [Concomitant]
     Active Substance: ACITRETIN
     Route: 065
  36. AMEVIVE [Concomitant]
     Active Substance: ALEFACEPT
     Route: 065
  37. ASPIRIN [Concomitant]
     Active Substance: ASPIRIN
     Route: 065
  38. COAL TAR [Concomitant]
     Active Substance: COAL TAR
     Route: 065
  39. AVAPRO [Concomitant]
     Active Substance: IRBESARTAN
     Route: 065
  40. CYMBALTA [Concomitant]
     Active Substance: DULOXETINE HYDROCHLORIDE
     Route: 065
  41. DOVONEX [Concomitant]
     Active Substance: CALCIPOTRIENE
     Route: 065
  42. ESOMEPRAZOLE [Concomitant]
     Active Substance: ESOMEPRAZOLE
     Route: 065
  43. PANTOPRAZOLE MAGNESIUM [Concomitant]
     Active Substance: PANTOPRAZOLE MAGNESIUM
     Route: 065
  44. HYDROCHLOROTHIAZIDE [Concomitant]
     Active Substance: HYDROCHLOROTHIAZIDE
     Route: 065
  45. TELMISARTAN [Concomitant]
     Active Substance: TELMISARTAN
     Route: 065
  46. STELARA [Concomitant]
     Active Substance: USTEKINUMAB
     Route: 065
  47. ZOLPIDEM [Concomitant]
     Active Substance: ZOLPIDEM TARTRATE
     Route: 065
  48. NEXIUM [Suspect]
     Active Substance: ESOMEPRAZOLE MAGNESIUM
     Dosage: UNK / DOSE TEXT: ESOMEPRAZOLE / UNK / UNK / DOSE TEXT: ESOMEPRAZOLE
     Route: 048
  49. METHYLPREDNISOLONE [Concomitant]
     Active Substance: METHYLPREDNISOLONE
     Route: 050
  50. ONDANSETRON [Suspect]
     Active Substance: ONDANSETRON
  51. NEXIUM 24HR [Suspect]
     Active Substance: ESOMEPRAZOLE MAGNESIUM
  52. PROCHLORPERAZINE [Suspect]
     Active Substance: PROCHLORPERAZINE
  53. PANTOPRAZOLE SODIUM [Suspect]
     Active Substance: PANTOPRAZOLE SODIUM
  54. METHYLPREDNISOLONE [Concomitant]
     Active Substance: METHYLPREDNISOLONE
     Route: 050
  55. DEPO-MEDROL [Concomitant]
     Active Substance: METHYLPREDNISOLONE ACETATE
     Route: 030
  56. SITAGLIPTIN [Concomitant]
     Active Substance: SITAGLIPTIN
  57. DOMPERIDONE [Suspect]
     Active Substance: DOMPERIDONE
  58. PANTOPRAZOLE MAGNESIUM [Concomitant]
     Active Substance: PANTOPRAZOLE MAGNESIUM
  59. ACETAMINOPHEN [Suspect]
     Active Substance: ACETAMINOPHEN
     Dosage: 650 MG QD
     Route: 048
  60. AMLODIPINE BESYLATE [Suspect]
     Active Substance: AMLODIPINE BESYLATE
     Route: 048

REACTIONS (54)
  - Gangrene [Unknown]
  - Cataract [Unknown]
  - Rheumatoid arthritis [Unknown]
  - Gastrointestinal disorder [Unknown]
  - Chest discomfort [Unknown]
  - Angina pectoris [Unknown]
  - Arthritis [Unknown]
  - Affect lability [Not Recovered/Not Resolved]
  - Carotid artery thrombosis [Not Recovered/Not Resolved]
  - Coordination abnormal [Not Recovered/Not Resolved]
  - Asthenia [Not Recovered/Not Resolved]
  - Cystitis [Not Recovered/Not Resolved]
  - Dysarthria [Not Recovered/Not Resolved]
  - Eating disorder [Not Recovered/Not Resolved]
  - Fall [Not Recovered/Not Resolved]
  - Hemiparesis [Not Recovered/Not Resolved]
  - Hemiplegia [Not Recovered/Not Resolved]
  - Influenza [Not Recovered/Not Resolved]
  - Motor dysfunction [Not Recovered/Not Resolved]
  - Muscle spasticity [Not Recovered/Not Resolved]
  - Muscular weakness [Not Recovered/Not Resolved]
  - Fatigue [Not Recovered/Not Resolved]
  - Neurologic neglect syndrome [Not Recovered/Not Resolved]
  - Pain [Not Recovered/Not Resolved]
  - Personality disorder [Not Recovered/Not Resolved]
  - Pneumonia [Not Recovered/Not Resolved]
  - Psoriasis [Not Recovered/Not Resolved]
  - Respiratory tract congestion [Not Recovered/Not Resolved]
  - Rhinorrhoea [Not Recovered/Not Resolved]
  - Sinus disorder [Not Recovered/Not Resolved]
  - Skin exfoliation [Not Recovered/Not Resolved]
  - Skin haemorrhage [Not Recovered/Not Resolved]
  - Headache [Not Recovered/Not Resolved]
  - Sneezing [Unknown]
  - Sensory loss [Not Recovered/Not Resolved]
  - Sinus congestion [Not Recovered/Not Resolved]
  - Dysphagia [Not Recovered/Not Resolved]
  - Malaise [Not Recovered/Not Resolved]
  - Nasopharyngitis [Not Recovered/Not Resolved]
  - Pyrexia [Not Recovered/Not Resolved]
  - Anxiety [Not Recovered/Not Resolved]
  - Cerebrovascular accident [Not Recovered/Not Resolved]
  - Confusional state [Not Recovered/Not Resolved]
  - Nausea [Not Recovered/Not Resolved]
  - Cough [Not Recovered/Not Resolved]
  - Vomiting [Not Recovered/Not Resolved]
  - Aphasia [Not Recovered/Not Resolved]
  - Adjustment disorder [Not Recovered/Not Resolved]
  - Influenza like illness [Not Recovered/Not Resolved]
  - Adjustment disorder [Not Recovered/Not Resolved]
  - Palpitations [Unknown]
  - Sinusitis [Unknown]
  - Arterial occlusive disease [Unknown]
  - Blood pressure increased [Unknown]
